FAERS Safety Report 4556383-5 (Version None)
Quarter: 2005Q1

REPORT INFORMATION
  Report Type: 
  Country: None (occurrence: None)
  Receive Date: 20050110
  Receipt Date: 20040310
  Transmission Date: 20050727
  Serious: No
  Sender: FDA-Public Use
  Company Number: HCDA20040003

PATIENT
  Age: 53 Year
  Sex: Female

DRUGS (4)
  1. HYDROCODONE/ACETAMINOPHEN     5/500 MG [Suspect]
     Indication: PAIN
     Dosage: PO
     Route: 048
  2. ENDOCET                      7.5/3.25MG                       ENDO [Suspect]
     Indication: PAIN
     Dosage: PO
     Route: 048
  3. MORPHINE SULFATE [Suspect]
     Indication: PAIN
     Dosage: 100 MG     PO
     Route: 048
  4. TRAZODONE [Concomitant]

REACTIONS (1)
  - DEPRESSED LEVEL OF CONSCIOUSNESS [None]
